FAERS Safety Report 4768160-0 (Version None)
Quarter: 2005Q3

REPORT INFORMATION
  Report Type: 
  Country: None (occurrence: None)
  Receive Date: 20050912
  Receipt Date: 20050912
  Transmission Date: 20060218
  Serious: No
  Sender: FDA-Public Use
  Company Number: None

PATIENT
  Age: 44 Year
  Sex: Male

DRUGS (1)
  1. METHADONE HCL [Suspect]
     Dosage: 60 MG PO X 1
     Route: 048
     Dates: start: 20050819

REACTIONS (1)
  - ELECTROCARDIOGRAM QT PROLONGED [None]
